FAERS Safety Report 5991102-7 (Version None)
Quarter: 2008Q4

REPORT INFORMATION
  Report Type: 
  Country: None (occurrence: None)
  Receive Date: 20081211
  Receipt Date: 20081201
  Transmission Date: 20090506
  Serious: Yes (Death)
  Sender: FDA-Public Use
  Company Number: US-TYCO HEALTHCARE/MALLINCKRODT-T200801682

PATIENT

DRUGS (7)
  1. OPTIMARK [Suspect]
     Indication: NUCLEAR MAGNETIC RESONANCE IMAGING
     Dosage: UNK, SINGLE
     Dates: start: 20050607, end: 20050607
  2. OMNISCAN [Suspect]
     Indication: NUCLEAR MAGNETIC RESONANCE IMAGING
     Dosage: UNK, SINGLE
     Dates: start: 20050813, end: 20050813
  3. LOPRESSOR [Concomitant]
     Indication: HYPERTENSION
     Dosage: UNK
     Dates: start: 20050101
  4. OXYCODONE HCL [Concomitant]
     Indication: ANALGESIA
     Dosage: UNK
     Dates: start: 20050101, end: 20080201
  5. FENTANYL                           /00174602/ [Concomitant]
     Indication: ANALGESIA
     Dosage: UNK
     Dates: start: 20050101, end: 20080201
  6. CARDIZEM [Concomitant]
     Indication: CARDIAC DISORDER
     Dosage: UNK
     Dates: start: 20030101, end: 20080101
  7. DIGOXIN [Concomitant]
     Indication: CARDIAC DISORDER
     Dosage: UNK
     Dates: start: 20030101, end: 20080101

REACTIONS (4)
  - ANXIETY [None]
  - DEPRESSION [None]
  - HYPERPARATHYROIDISM [None]
  - NEPHROGENIC SYSTEMIC FIBROSIS [None]
